FAERS Safety Report 11212345 (Version 1)
Quarter: 2015Q2

REPORT INFORMATION
  Report Type: Spontaneous
  Country: US (occurrence: US)
  Receive Date: 20150623
  Receipt Date: 20150623
  Transmission Date: 20150821
  Serious: No
  Sender: FDA-Public Use
  Company Number: US-PFIZER INC-2015207201

PATIENT
  Age: 64 Year
  Sex: Female
  Weight: 68 kg

DRUGS (7)
  1. SIMACORT /00031901/ [Concomitant]
     Dosage: UNK
  2. SPIRIVA [Concomitant]
     Active Substance: TIOTROPIUM BROMIDE MONOHYDRATE
     Dosage: UNK
  3. LIPITOR [Concomitant]
     Active Substance: ATORVASTATIN CALCIUM
     Dosage: UNK
  4. NIACIN ER [Concomitant]
     Active Substance: NIACIN
     Dosage: 1000 MG, UNK
  5. AEROSPORIN [Concomitant]
     Active Substance: POLYMYXIN B SULFATE
     Dosage: UNK, DAILY
  6. NICOTROL [Suspect]
     Active Substance: NICOTINE
     Indication: SMOKING CESSATION THERAPY
     Dosage: UNK
  7. FISH OIL [Concomitant]
     Active Substance: FISH OIL
     Dosage: UNK

REACTIONS (1)
  - Chronic obstructive pulmonary disease [Not Recovered/Not Resolved]
